FAERS Safety Report 6248710-8 (Version None)
Quarter: 2009Q2

REPORT INFORMATION
  Report Type: 
  Country: None (occurrence: None)
  Receive Date: 20090624
  Receipt Date: 20090608
  Transmission Date: 20091009
  Serious: Yes (Other)
  Sender: FDA-Public Use
  Company Number: 2009AL000464

PATIENT
  Age: 93 Year
  Sex: Female

DRUGS (7)
  1. DIGOXIN [Suspect]
     Dosage: PO
     Route: 048
  2. DYAZIDE [Concomitant]
  3. ACIPHEX [Concomitant]
  4. FOSAMEX [Concomitant]
  5. DILTIAZEM [Concomitant]
  6. COSOPT [Concomitant]
  7. TRIAMTERENE [Concomitant]

REACTIONS (11)
  - ATRIAL FIBRILLATION [None]
  - BRADYCARDIA [None]
  - ECONOMIC PROBLEM [None]
  - FALL [None]
  - FATIGUE [None]
  - HEART RATE DECREASED [None]
  - HEART RATE IRREGULAR [None]
  - LETHARGY [None]
  - PAIN [None]
  - THERAPEUTIC AGENT TOXICITY [None]
  - WRIST FRACTURE [None]
